FAERS Safety Report 14700389 (Version 3)
Quarter: 2019Q1

REPORT INFORMATION
  Report Type: Spontaneous
  Country: NL (occurrence: NL)
  Receive Date: 20180330
  Receipt Date: 20190214
  Transmission Date: 20190417
  Serious: Yes (Death, Other)
  Sender: FDA-Public Use
  Company Number: NL-JNJFOC-20180340324

PATIENT
  Age: 26 Year
  Sex: Female

DRUGS (1)
  1. CONCERTA [Suspect]
     Active Substance: METHYLPHENIDATE HYDROCHLORIDE
     Indication: BIPOLAR I DISORDER
     Route: 065
     Dates: start: 20180118

REACTIONS (4)
  - Completed suicide [Fatal]
  - Product use in unapproved indication [Unknown]
  - Off label use [Unknown]
  - Hallucination, tactile [Fatal]

NARRATIVE: CASE EVENT DATE: 20180118
